FAERS Safety Report 7378919-1 (Version None)
Quarter: 2011Q1

REPORT INFORMATION
  Report Type: 
  Country: None (occurrence: None)
  Receive Date: 20110317
  Receipt Date: 20110302
  Transmission Date: 20110831
  Serious: Yes (Hospitalization, Other)
  Sender: FDA-Public Use
  Company Number: 2011MA001608

PATIENT
  Age: 50 Year
  Sex: Female
  Weight: 65 kg

DRUGS (1)
  1. METFORMIN HYDROCHLORIDE [Suspect]
     Indication: SUICIDE ATTEMPT
     Dosage: 34000 MG U, PO
     Route: 048

REACTIONS (15)
  - SUICIDE ATTEMPT [None]
  - BODY TEMPERATURE DECREASED [None]
  - RESPIRATORY FAILURE [None]
  - TACHYPNOEA [None]
  - OVERDOSE [None]
  - DEPRESSED LEVEL OF CONSCIOUSNESS [None]
  - CARDIOVASCULAR INSUFFICIENCY [None]
  - PLEURAL EFFUSION [None]
  - LACTIC ACIDOSIS [None]
  - AGITATION [None]
  - RENAL FAILURE [None]
  - SYSTEMIC INFLAMMATORY RESPONSE SYNDROME [None]
  - SOPOR [None]
  - SKIN DISCOLOURATION [None]
  - CAPILLARY LEAK SYNDROME [None]
